FAERS Safety Report 20615276 (Version 1)
Quarter: 2022Q1

REPORT INFORMATION
  Report Type: Spontaneous
  Country: GB (occurrence: GB)
  Receive Date: 20220321
  Receipt Date: 20220321
  Transmission Date: 20220423
  Serious: Yes (Congenital Anomaly)
  Sender: FDA-Public Use
  Company Number: GB-ABBVIE-22K-167-4321612-00

PATIENT
  Sex: Male

DRUGS (1)
  1. VALPROATE SODIUM [Suspect]
     Active Substance: VALPROATE SODIUM
     Indication: Maternal exposure timing unspecified
     Route: 064

REACTIONS (8)
  - Learning disability [Unknown]
  - Dyslexia [Unknown]
  - Mental disorder [Unknown]
  - Physical disability [Unknown]
  - Attention deficit hyperactivity disorder [Unknown]
  - Abnormal behaviour [Unknown]
  - Foetal exposure during pregnancy [Unknown]
  - Premature baby [Unknown]
